FAERS Safety Report 6925181-7 (Version None)
Quarter: 2010Q3

REPORT INFORMATION
  Report Type: 
  Country: None (occurrence: None)
  Receive Date: 20100816
  Receipt Date: 20100806
  Transmission Date: 20110219
  Serious: Yes (Hospitalization, Other)
  Sender: FDA-Public Use
  Company Number: US-PFIZER INC-2010071481

PATIENT
  Sex: Male

DRUGS (2)
  1. CHANTIX [Suspect]
     Indication: SMOKING CESSATION THERAPY
     Dosage: 0.5 MG, 1 MG
     Dates: start: 20071101, end: 20080301
  2. LIPITOR [Concomitant]
     Indication: BLOOD CHOLESTEROL INCREASED
     Dosage: UNK
     Dates: start: 20050101

REACTIONS (8)
  - ABNORMAL DREAMS [None]
  - DELUSION [None]
  - DEPRESSION [None]
  - HEADACHE [None]
  - INTENTIONAL OVERDOSE [None]
  - NIGHTMARE [None]
  - SLEEP DISORDER [None]
  - SUICIDE ATTEMPT [None]
